FAERS Safety Report 4456705-X (Version None)
Quarter: 2004Q3

REPORT INFORMATION
  Report Type: 
  Country: None (occurrence: None)
  Receive Date: 20040921
  Receipt Date: 20040908
  Transmission Date: 20050211
  Serious: Yes (Death, Hospitalization)
  Sender: FDA-Public Use
  Company Number: PERI00204003212

PATIENT
  Age: 64 Year
  Sex: Male
  Weight: 83 kg

DRUGS (9)
  1. COVERSYL (PERINDOPRIL) [Suspect]
     Dosage: 4 MG QD PO
     Route: 048
     Dates: end: 20040818
  2. ACEBUTOLOL [Suspect]
     Dosage: DAILY PO
     Route: 048
     Dates: end: 20040823
  3. DOGMATIL (SULPIRIDE) [Suspect]
     Dosage: 50 MG QD PO
     Route: 048
     Dates: end: 20040818
  4. LORAZEPAM [Suspect]
     Dosage: DAILY PO
     Route: 048
     Dates: end: 20040818
  5. ASPIRIN [Suspect]
     Dosage: 160 MG QD PO
     Route: 048
     Dates: end: 20040818
  6. DIPRIVAN [Concomitant]
  7. RAPIFEN (ALFENTANIL HYDROCHLORIDE) [Concomitant]
  8. SEVOFLURANE [Concomitant]
  9. DESMODIUM ADSCENDENS (DESMODIUM ADSCENDENS) [Concomitant]

REACTIONS (6)
  - BILE DUCT CANCER [None]
  - CYTOLYTIC HEPATITIS [None]
  - HEPATIC ENCEPHALOPATHY [None]
  - HEPATIC FAILURE [None]
  - PRURITUS [None]
  - PULMONARY EMBOLISM [None]
